FAERS Safety Report 6057839-9 (Version None)
Quarter: 2009Q1

REPORT INFORMATION
  Report Type: 
  Country: None (occurrence: None)
  Receive Date: 20090129
  Receipt Date: 20090121
  Transmission Date: 20090719
  Serious: Yes (Hospitalization)
  Sender: FDA-Public Use
  Company Number: FR-GILEAD-2009-0019941

PATIENT
  Sex: Male

DRUGS (8)
  1. TRUVADA [Suspect]
     Indication: ANTIRETROVIRAL THERAPY
     Route: 048
     Dates: start: 20081211, end: 20081216
  2. FORTUM [Concomitant]
     Route: 048
     Dates: start: 20081205, end: 20081216
  3. ZOVIRAX [Concomitant]
     Route: 048
     Dates: start: 20081211, end: 20081216
  4. ISENTRESS [Concomitant]
     Indication: ANTIRETROVIRAL THERAPY
     Route: 048
     Dates: start: 20081211, end: 20081216
  5. PREZISTA [Concomitant]
     Indication: ANTIRETROVIRAL THERAPY
     Route: 048
     Dates: start: 20081211, end: 20081216
  6. NORVIR [Concomitant]
     Indication: ANTIRETROVIRAL THERAPY
     Route: 048
     Dates: start: 20081211, end: 20081216
  7. PENTACARINET [Concomitant]
     Route: 055
     Dates: start: 20081014
  8. ARIXTRA [Concomitant]

REACTIONS (2)
  - PRURITUS [None]
  - RASH [None]
